FAERS Safety Report 7250123-7 (Version None)
Quarter: 2011Q1

REPORT INFORMATION
  Report Type: 
  Country: None (occurrence: None)
  Receive Date: 20110128
  Receipt Date: 20110110
  Transmission Date: 20110831
  Serious: Yes (Other)
  Sender: FDA-Public Use
  Company Number: CA-BAYER-2011-003128

PATIENT
  Age: 34 Year
  Sex: Female
  Weight: 47.619 kg

DRUGS (3)
  1. CITALOPRAM [Concomitant]
  2. MIRENA [Suspect]
     Indication: PRODUCT USED FOR UNKNOWN INDICATION
     Dosage: UNK, CONT
     Route: 015
  3. ATIVAN [Concomitant]

REACTIONS (7)
  - HEADACHE [None]
  - HYPERHIDROSIS [None]
  - BACK PAIN [None]
  - FATIGUE [None]
  - PALPITATIONS [None]
  - DEPRESSION [None]
  - HYPOAESTHESIA [None]
